FAERS Safety Report 8607268 (Version 4)
Quarter: 2014Q1

REPORT INFORMATION
  Report Type: Spontaneous
  Country: US (occurrence: US)
  Receive Date: 20120611
  Receipt Date: 20140211
  Transmission Date: 20141002
  Serious: Yes (Disabling, Other)
  Sender: FDA-Public Use
  Company Number: US-ASTRAZENECA-2012SE34654

PATIENT
  Age: 39 Year
  Sex: Male
  Weight: 68.9 kg

DRUGS (16)
  1. NEXIUM [Suspect]
     Indication: GASTROOESOPHAGEAL REFLUX DISEASE
     Route: 048
     Dates: start: 1998
  2. NEXIUM [Suspect]
     Indication: GASTROOESOPHAGEAL REFLUX DISEASE
     Route: 048
     Dates: start: 2003
  3. NEXIUM [Suspect]
     Indication: GASTROOESOPHAGEAL REFLUX DISEASE
     Route: 048
     Dates: start: 20050725, end: 201207
  4. NEXIUM [Suspect]
     Indication: GASTROOESOPHAGEAL REFLUX DISEASE
     Route: 048
     Dates: start: 20130118
  5. PRILOSEC [Suspect]
     Indication: GASTROOESOPHAGEAL REFLUX DISEASE
     Route: 048
     Dates: start: 2001, end: 2003
  6. CARTIA XT [Concomitant]
     Dates: start: 20050310
  7. ZANTAC OTC [Concomitant]
  8. PEPTO BISMOL [Concomitant]
  9. ROLAIDS [Concomitant]
  10. ASPIRIN [Concomitant]
  11. LISINOPRIL [Concomitant]
     Indication: HYPERTENSION
  12. SIMVASTATIN [Concomitant]
     Indication: HYPERTENSION
     Route: 048
  13. VENLAFAXINE [Concomitant]
     Indication: HYPERTENSION
     Route: 048
  14. ZOLPIDEM [Concomitant]
     Indication: HYPERTENSION
     Route: 048
  15. CEPHALEXIN [Concomitant]
     Route: 048
  16. DOXYCYCLINE HYCLATE [Concomitant]
     Route: 048

REACTIONS (7)
  - Deafness bilateral [Unknown]
  - Staphylococcal infection [Unknown]
  - Osteoporosis [Unknown]
  - Fracture [Unknown]
  - Bone disorder [Unknown]
  - Upper limb fracture [Unknown]
  - Arthropathy [Unknown]
